FAERS Safety Report 7000231-0 (Version None)
Quarter: 2010Q3

REPORT INFORMATION
  Report Type: 
  Country: None (occurrence: None)
  Receive Date: 20100920
  Receipt Date: 20090923
  Transmission Date: 20110219
  Serious: No
  Sender: FDA-Public Use
  Company Number: US-ASTRAZENECA-2009SE15048

PATIENT
  Age: 43 Year
  Sex: Female
  Weight: 136.1 kg

DRUGS (4)
  1. SEROQUEL [Suspect]
     Indication: SLEEP DISORDER
     Route: 048
     Dates: start: 20000101, end: 20080101
  2. WELLBUTRIN [Concomitant]
     Dates: start: 20020101
  3. LEXAPRO [Concomitant]
     Dates: start: 20080901
  4. TRAZODONE HCL [Concomitant]
     Dates: start: 20090701

REACTIONS (5)
  - BIPOLAR DISORDER [None]
  - DEPRESSION [None]
  - DIABETES MELLITUS [None]
  - MENTAL DISORDER [None]
  - THYROID DISORDER [None]
